FAERS Safety Report 11720971 (Version 1)
Quarter: 2015Q4

REPORT INFORMATION
  Report Type: Spontaneous
  Country: US (occurrence: US)
  Receive Date: 20151110
  Receipt Date: 20151110
  Transmission Date: 20160304
  Serious: No
  Sender: FDA-Public Use
  Company Number: US-SA-2015SA155416

PATIENT
  Age: 63 Year
  Sex: Male

DRUGS (4)
  1. ALIROCUMAB PREFILLED PEN [Concomitant]
     Dates: start: 20150803, end: 20150929
  2. KRILL OIL [Concomitant]
     Active Substance: DIETARY SUPPLEMENT
  3. NIACIN. [Concomitant]
     Active Substance: NIACIN
  4. PRALUENT [Suspect]
     Active Substance: ALIROCUMAB
     Dosage: FREQUENCY IS EVERY 2 WEEKS
     Route: 065
     Dates: start: 20150803

REACTIONS (2)
  - Pain [Unknown]
  - Arthralgia [Unknown]

NARRATIVE: CASE EVENT DATE: 20150928
